FAERS Safety Report 6018199-2 (Version None)
Quarter: 2008Q4

REPORT INFORMATION
  Report Type: 
  Country: None (occurrence: None)
  Receive Date: 20081223
  Receipt Date: 20081215
  Transmission Date: 20090506
  Serious: Yes (Other)
  Sender: FDA-Public Use
  Company Number: PHHY2008GB32109

PATIENT
  Sex: Female
  Weight: 43 kg

DRUGS (1)
  1. RECLAST [Suspect]
     Indication: OSTEOPOROSIS
     Dosage: UNK
     Dates: start: 20080610

REACTIONS (3)
  - GAIT DISTURBANCE [None]
  - MALAISE [None]
  - UNRESPONSIVE TO STIMULI [None]
